FAERS Safety Report 17695094 (Version 1)
Quarter: 2020Q2

REPORT INFORMATION
  Report Type: Spontaneous
  Country: US (occurrence: US)
  Receive Date: 20200422
  Receipt Date: 20200422
  Transmission Date: 20200714
  Serious: No
  Sender: FDA-Public Use
  Company Number: US-GALDERMA-US2020006095

PATIENT
  Age: 25 Year
  Sex: Female

DRUGS (24)
  1. PROACTIV MD BALANCING TONER [Concomitant]
     Active Substance: COSMETICS
     Indication: ACNE
     Route: 061
     Dates: start: 201910, end: 20200110
  2. PROACTIV MD ADAPALENE ACNE TREATMENT [Suspect]
     Active Substance: ADAPALENE
     Indication: DRY SKIN
  3. PROACTIV MD DEEP CLEANSING FACE WASH [Concomitant]
     Active Substance: COSMETICS
     Indication: ACNE
     Route: 061
     Dates: start: 201910, end: 20200110
  4. PROACTIV PLUS PORE TARGETING TREATMENT [Concomitant]
     Active Substance: BENZOYL PEROXIDE
     Indication: ACNE
     Route: 061
     Dates: start: 201910, end: 20200110
  5. PROACTIV MD BALANCING TONER [Concomitant]
     Active Substance: COSMETICS
     Indication: DRY SKIN
  6. PROACTIV MD ADAPALENE ACNE TREATMENT [Suspect]
     Active Substance: ADAPALENE
     Indication: ACNE
     Dosage: 0.1%
     Route: 061
     Dates: start: 201910, end: 20200110
  7. PROACTIV MD DAILY OIL CONTROL SPF 30 [Suspect]
     Active Substance: AVOBENZONE\OCTISALATE\OCTOCRYLENE
     Indication: DRY SKIN
  8. PROACTIV ADVANCED DARK SPOT CORRECTING SERUM [Concomitant]
     Active Substance: HYDROQUINONE
     Indication: ACNE
     Route: 061
     Dates: start: 201910, end: 20200110
  9. PROACTIV CLARIFYING MINERAL SERUM [Concomitant]
     Indication: DRY SKIN
  10. PROACTIVPLUS SKIN SMOOTHING EXFOLIATOR [Concomitant]
     Active Substance: BENZOYL PEROXIDE
     Indication: DRY SKIN
  11. PROACTIV MD DAILY OIL CONTROL SPF 30 [Suspect]
     Active Substance: AVOBENZONE\OCTISALATE\OCTOCRYLENE
     Indication: ACNE
     Route: 061
     Dates: start: 201910, end: 20200110
  12. PROACTIV GREEN TEA MOISTURIZER [Concomitant]
     Active Substance: COSMETICS
     Indication: DRY SKIN
     Route: 061
     Dates: start: 201910, end: 20200110
  13. PROACTIV PLUS PORE TARGETING TREATMENT [Concomitant]
     Active Substance: BENZOYL PEROXIDE
     Indication: DRY SKIN
  14. PROACTIV PLUS COMPLEXION PERFECTING HYDRATOR [Concomitant]
     Active Substance: SALICYLIC ACID
     Indication: ACNE
     Route: 061
     Dates: start: 201910, end: 20200110
  15. PROACTIV DEEP CLEANSING WASH [Concomitant]
     Active Substance: SALICYLIC ACID
     Indication: DRY SKIN
  16. PROACTIV ADVANCED DARK SPOT CORRECTING SERUM [Concomitant]
     Active Substance: HYDROQUINONE
     Indication: DRY SKIN
  17. PROACTIVPLUS SKIN SMOOTHING EXFOLIATOR [Concomitant]
     Active Substance: BENZOYL PEROXIDE
     Indication: ACNE
     Route: 061
     Dates: start: 201910, end: 20200110
  18. PROACTIV CLARIFYING NIGHT ACNE TREATMENT [Concomitant]
     Active Substance: SALICYLIC ACID
     Indication: ACNE
     Route: 061
     Dates: start: 201910, end: 20200110
  19. PROACTIV MD DEEP CLEANSING FACE WASH [Concomitant]
     Active Substance: COSMETICS
     Indication: DRY SKIN
  20. PROACTIV PLUS COMPLEXION PERFECTING HYDRATOR [Concomitant]
     Active Substance: SALICYLIC ACID
     Indication: DRY SKIN
  21. PROACTIV DEEP CLEANSING WASH [Concomitant]
     Active Substance: SALICYLIC ACID
     Indication: ACNE
     Route: 061
     Dates: start: 201910, end: 20200110
  22. PROACTIV CLARIFYING NIGHT ACNE TREATMENT [Concomitant]
     Active Substance: SALICYLIC ACID
     Indication: DRY SKIN
  23. PROACTIV GREEN TEA MOISTURIZER [Concomitant]
     Active Substance: COSMETICS
     Indication: ACNE
     Route: 061
     Dates: start: 201910, end: 20200110
  24. PROACTIV CLARIFYING MINERAL SERUM [Concomitant]
     Indication: ACNE
     Route: 061
     Dates: start: 201910, end: 20200110

REACTIONS (1)
  - Skin burning sensation [Recovered/Resolved]

NARRATIVE: CASE EVENT DATE: 201911
